FAERS Safety Report 17324149 (Version 1)
Quarter: 2020Q1

REPORT INFORMATION
  Report Type: Report from Study
  Country: IT (occurrence: IT)
  Receive Date: 20200127
  Receipt Date: 20200127
  Transmission Date: 20200409
  Serious: Yes (Hospitalization)
  Sender: FDA-Public Use
  Company Number: IT-TEVA-2020-IT-1173146

PATIENT
  Age: 51 Year
  Sex: Female

DRUGS (6)
  1. LYRICA [Concomitant]
     Active Substance: PREGABALIN
  2. ALDACTONE [Concomitant]
     Active Substance: SPIRONOLACTONE
  3. BACLOFEN. [Concomitant]
     Active Substance: BACLOFEN
     Dates: start: 20191025, end: 20191223
  4. VORTIOXETINE HYDROBROMIDE [Concomitant]
     Active Substance: VORTIOXETINE HYDROBROMIDE
     Indication: DEPRESSION
     Dates: start: 20191030, end: 20191223
  5. ARIPIPRAZOLE. [Suspect]
     Active Substance: ARIPIPRAZOLE
     Dates: start: 20191025, end: 20191223
  6. LANSOPRAZOLE. [Concomitant]
     Active Substance: LANSOPRAZOLE

REACTIONS (5)
  - Genital burning sensation [Unknown]
  - Erythema [Unknown]
  - Pyrexia [Unknown]
  - Face oedema [Unknown]
  - Lip injury [Unknown]

NARRATIVE: CASE EVENT DATE: 20191215
